FAERS Safety Report 5391181-4 (Version None)
Quarter: 2007Q3

REPORT INFORMATION
  Report Type: 
  Country: None (occurrence: None)
  Receive Date: 20070719
  Receipt Date: 20070713
  Transmission Date: 20080115
  Serious: Yes (Other)
  Sender: FDA-Public Use
  Company Number: PHEH2007US09112

PATIENT
  Age: 62 Year
  Sex: Female

DRUGS (1)
  1. ZELNORM [Suspect]
     Indication: IRRITABLE BOWEL SYNDROME
     Dosage: 10 MG, BID
     Route: 048
     Dates: start: 20010101, end: 20070501

REACTIONS (3)
  - BRAIN SCAN ABNORMAL [None]
  - CEREBROVASCULAR ACCIDENT [None]
  - MUSCULAR WEAKNESS [None]
